FAERS Safety Report 8623242-8 (Version None)
Quarter: 2012Q3

REPORT INFORMATION
  Report Type: 
  Country: None (occurrence: None)
  Receive Date: 20120827
  Receipt Date: 20120806
  Transmission Date: 20120928
  Serious: No
  Sender: FDA-Public Use
  Company Number: US-009507513-1208USA003648

PATIENT

DRUGS (4)
  1. REBETOL [Suspect]
     Dosage: UNK
     Route: 048
  2. PROTONIX [Concomitant]
  3. PEG-INTRON [Suspect]
     Dosage: 80 MICROGRAM, QW
     Route: 058
  4. VICTRELIS [Suspect]
     Dosage: UNK
     Route: 048

REACTIONS (5)
  - HAEMOGLOBIN DECREASED [None]
  - DYSGEUSIA [None]
  - NAUSEA [None]
  - CHILLS [None]
  - ASTHENIA [None]
